FAERS Safety Report 8288602-6 (Version None)
Quarter: 2012Q2

REPORT INFORMATION
  Report Type: 
  Country: None (occurrence: None)
  Receive Date: 20120416
  Receipt Date: 20111026
  Transmission Date: 20120825
  Serious: Yes (Other)
  Sender: FDA-Public Use
  Company Number: US-SANTEN INC.-INC-12-000116

PATIENT

DRUGS (2)
  1. TIMOLOL MALEATE [Suspect]
     Route: 047
  2. TIMOLOL MALEATE [Suspect]
     Indication: GLAUCOMA
     Route: 047

REACTIONS (1)
  - PNEUMONIA [None]
